FAERS Safety Report 7350557-6 (Version None)
Quarter: 2011Q1

REPORT INFORMATION
  Report Type: 
  Country: None (occurrence: None)
  Receive Date: 20110314
  Receipt Date: 20110309
  Transmission Date: 20110831
  Serious: Yes (Life-Threatening, Hospitalization)
  Sender: FDA-Public Use
  Company Number: JP-PFIZER INC-2011052178

PATIENT
  Age: 75 Year
  Sex: Male

DRUGS (1)
  1. SULPERAZON [Suspect]
     Indication: INFECTION PROPHYLAXIS
     Dosage: UNK
     Route: 041
     Dates: start: 20110308, end: 20110308

REACTIONS (1)
  - SHOCK [None]
